FAERS Safety Report 16239094 (Version 1)
Quarter: 2019Q2

REPORT INFORMATION
  Report Type: Spontaneous
  Country: US (occurrence: US)
  Receive Date: 20190424
  Receipt Date: 20190424
  Transmission Date: 20190711
  Serious: Yes (Other)
  Sender: FDA-Public Use
  Company Number: None

PATIENT
  Age: 53 Year
  Sex: Female

DRUGS (1)
  1. SYMPROIC [Suspect]
     Active Substance: NALDEMEDINE
     Indication: CONSTIPATION
     Dosage: ?          QUANTITY:1 TABLET(S);?
     Route: 048

REACTIONS (7)
  - Pruritus [None]
  - Hypersensitivity [None]
  - Blood pressure abnormal [None]
  - Rash [None]
  - Pain [None]
  - Urticaria [None]
  - Ischaemia [None]

NARRATIVE: CASE EVENT DATE: 20190315
